FAERS Safety Report 25352749 (Version 1)
Quarter: 2025Q2

REPORT INFORMATION
  Report Type: Spontaneous
  Country: US (occurrence: None)
  Receive Date: 20250523
  Receipt Date: 20250523
  Transmission Date: 20250717
  Serious: Yes (Hospitalization)
  Sender: FDA-CTU
  Company Number: None

PATIENT
  Age: 31 Year
  Sex: Female
  Weight: 70.2 kg

DRUGS (1)
  1. ELFABRIO [Suspect]
     Active Substance: PEGUNIGALSIDASE ALFA-IWXJ
     Indication: Fabry^s disease
     Route: 042
     Dates: start: 20250516

REACTIONS (6)
  - Infusion related reaction [None]
  - Chest pain [None]
  - Dyspnoea [None]
  - Feeling hot [None]
  - Erythema [None]
  - Chills [None]

NARRATIVE: CASE EVENT DATE: 20250516
